FAERS Safety Report 18055183 (Version 1)
Quarter: 2020Q3

REPORT INFORMATION
  Report Type: Spontaneous
  Country: DE (occurrence: DE)
  Receive Date: 20200722
  Receipt Date: 20200722
  Transmission Date: 20201103
  Serious: Yes (Hospitalization, Other)
  Sender: FDA-Public Use
  Company Number: NVSC2020DE200815

PATIENT
  Sex: Male

DRUGS (12)
  1. PIPAMPERONE [Concomitant]
     Active Substance: PIPAMPERONE
     Indication: PROPHYLAXIS
     Dosage: 10 ML (10 MILLILITER)
     Route: 065
  2. EISEN [Concomitant]
     Indication: PROPHYLAXIS
     Dosage: 1 DF (UNK, 70 DROPS)
     Route: 065
  3. BISOPROLOL [Concomitant]
     Active Substance: BISOPROLOL
     Indication: PRODUCT USED FOR UNKNOWN INDICATION
     Dosage: 2.5 OT  [ 2.5 (UNSPECIFIES UNITS)]
     Route: 065
  4. PACLITAXEL. [Suspect]
     Active Substance: PACLITAXEL
     Indication: SQUAMOUS CELL CARCINOMA OF HEAD AND NECK
     Dosage: 90 MG/M2 (90 MILLIGRAM/SQ. METER ON D1, 8, 15, 22, 29, 36 REPETITION D 57)
     Route: 065
     Dates: start: 20200120
  5. ENOXAPARIN SODIUM. [Concomitant]
     Active Substance: ENOXAPARIN SODIUM
     Indication: PROPHYLAXIS
     Dosage: 1 ML (01.0 MILLILITER)
     Route: 065
     Dates: start: 20181116, end: 201907
  6. NIVOLUMAB [Suspect]
     Active Substance: NIVOLUMAB
     Indication: SQUAMOUS CELL CARCINOMA OF HEAD AND NECK
     Dosage: 240 MG, Q2W (240 MILLIGRAM, Q2WK)
     Route: 042
     Dates: start: 20190131
  7. ESOMEPRAZOLE. [Concomitant]
     Active Substance: ESOMEPRAZOLE MAGNESIUM
     Indication: PRODUCT USED FOR UNKNOWN INDICATION
     Dosage: 20 MG (20 MILLIGRAM)
     Route: 065
  8. ACETYLSALICYLIC ACID [Concomitant]
     Active Substance: ASPIRIN
     Indication: PROPHYLAXIS
     Dosage: 100 MG (100 MILLIGRAM)
     Route: 065
  9. XARELTO [Concomitant]
     Active Substance: RIVAROXABAN
     Indication: PROPHYLAXIS
     Dosage: UNK
     Route: 065
  10. SIMVASTATIN. [Concomitant]
     Active Substance: SIMVASTATIN
     Indication: PRODUCT USED FOR UNKNOWN INDICATION
     Dosage: 40 MG (40 MILLIGRAM)
     Route: 065
  11. CARBOPLATIN. [Suspect]
     Active Substance: CARBOPLATIN
     Indication: SQUAMOUS CELL CARCINOMA OF HEAD AND NECK
     Dosage: UNK (AUC 2 ON D1, 8, 15, 22, 29, 36 REPETITION D 57)
     Route: 065
     Dates: start: 20200120
  12. SCOPOLAMIN [Concomitant]
     Active Substance: SCOPOLAMINE
     Indication: PROPHYLAXIS
     Dosage: 30 MG (30 MILLIGRAM, EVERY 3 DAYS)
     Route: 065

REACTIONS (5)
  - Vomiting [Unknown]
  - Hypothyroidism [Not Recovered/Not Resolved]
  - Tumour pain [Not Recovered/Not Resolved]
  - Nausea [Recovered/Resolved]
  - Pneumonia [Not Recovered/Not Resolved]

NARRATIVE: CASE EVENT DATE: 20190228
